FAERS Safety Report 9405493 (Version 1)
Quarter: 2013Q3

REPORT INFORMATION
  Report Type: Spontaneous
  Country: US (occurrence: US)
  Receive Date: 20130717
  Receipt Date: 20130717
  Transmission Date: 20140515
  Serious: No
  Sender: FDA-Public Use
  Company Number: US-B.I. PHARMACEUTICALS,INC./RIDGEFIELD-2013-BI-20385BP

PATIENT
  Sex: Female
  Weight: 89 kg

DRUGS (1)
  1. TRADJENTA [Suspect]
     Indication: BLOOD GLUCOSE INCREASED
     Dosage: 5 MG
     Route: 048
     Dates: start: 201209

REACTIONS (2)
  - Oral pain [Not Recovered/Not Resolved]
  - Vitamin B12 decreased [Not Recovered/Not Resolved]
